FAERS Safety Report 4414186-6 (Version None)
Quarter: 2004Q3

REPORT INFORMATION
  Report Type: 
  Country: None (occurrence: None)
  Receive Date: 20040728
  Receipt Date: 20040722
  Transmission Date: 20050211
  Serious: Yes (Hospitalization)
  Sender: FDA-Public Use
  Company Number: TPG2004A00173

PATIENT
  Age: 59 Year
  Sex: Female

DRUGS (4)
  1. ACTOS [Suspect]
     Indication: DIABETES MELLITUS NON-INSULIN-DEPENDENT
     Dosage: 30 MG (30 MG, 1 IN 1 D)
     Route: 048
     Dates: start: 20030701, end: 20040411
  2. TRAVILOR RETARD (VENLAFAXINE HYDROCHLORIDE) [Suspect]
     Indication: DEPRESSION
     Dosage: 75 MG (75 MG 1 IN 1 D)
     Route: 048
     Dates: start: 20031201
  3. METFORMIN HYDROCHLORIDE [Concomitant]
  4. RUDOTEL (MEDAZEPAM) [Concomitant]

REACTIONS (9)
  - ARTHRALGIA [None]
  - CHEST DISCOMFORT [None]
  - DRUG INTERACTION POTENTIATION [None]
  - ERYTHEMA MULTIFORME [None]
  - GRANULOMA ANNULARE [None]
  - HEPATITIS A POSITIVE [None]
  - PAIN IN EXTREMITY [None]
  - PERIPHERAL COLDNESS [None]
  - TENSION [None]
